FAERS Safety Report 23586419 (Version 2)
Quarter: 2024Q1

REPORT INFORMATION
  Report Type: Spontaneous
  Country: IT (occurrence: IT)
  Receive Date: 20240301
  Receipt Date: 20240306
  Transmission Date: 20240410
  Serious: Yes (Other)
  Sender: FDA-Public Use
  Company Number: IT-MLMSERVICE-20240222-4844732-1

PATIENT
  Age: 63 Year
  Sex: Male

DRUGS (22)
  1. CYTARABINE [Suspect]
     Active Substance: CYTARABINE
     Indication: Acute promyelocytic leukaemia
     Dosage: 2250 MG/M2, CYCLIC(EVERY 8 HOURS ON DAYS 1, 2, 3, 4, AND 5)
     Route: 042
  2. CYTARABINE [Suspect]
     Active Substance: CYTARABINE
     Dosage: 4000 MG/M2, CYCLIC(DAYS 1, 2, 3, AND 4)
     Route: 042
  3. CYTARABINE [Suspect]
     Active Substance: CYTARABINE
     Dosage: 1 G/M2 ON DAY 1,2,3, AND 4
     Route: 042
  4. CYTARABINE [Suspect]
     Active Substance: CYTARABINE
     Dosage: 150 MG/M2, CYCLIC: EVERY 8 HOURS ON DAYS 1, 2, 3, 4, AND 5
     Route: 042
  5. ETOPOSIDE [Suspect]
     Active Substance: ETOPOSIDE
     Indication: Acute promyelocytic leukaemia
     Dosage: 500 MG/M2, CYCLIC
  6. ETOPOSIDE [Suspect]
     Active Substance: ETOPOSIDE
     Dosage: 100 MG/M2, CYCLIC: ON DAYS 1, 2, 3, 4, AND 5
     Route: 042
  7. IDARUBICIN HYDROCHLORIDE [Suspect]
     Active Substance: IDARUBICIN HYDROCHLORIDE
     Indication: Acute promyelocytic leukaemia
     Dosage: 12 MG/M2, CYCLIC, ON DAYS 2, 4, 6, AND 8
     Route: 042
  8. IDARUBICIN HYDROCHLORIDE [Suspect]
     Active Substance: IDARUBICIN HYDROCHLORIDE
     Dosage: 48 MG/M2, CYCLIC(ON DAYS 2, 4, 6, 8)
     Route: 042
  9. IDARUBICIN HYDROCHLORIDE [Suspect]
     Active Substance: IDARUBICIN HYDROCHLORIDE
     Dosage: 15 MG/M2 ON DAYS 1, 2, 3, AND 4
     Route: 042
  10. IDARUBICIN HYDROCHLORIDE [Suspect]
     Active Substance: IDARUBICIN HYDROCHLORIDE
     Dosage: 12 MG/M2, CYCLIC, ON DAYS 1
     Route: 042
  11. METHOTREXATE SODIUM [Suspect]
     Active Substance: METHOTREXATE SODIUM
     Indication: Acute promyelocytic leukaemia
     Dosage: 15 MG/M2(MAINTENANCE THERAPY, EVERY 3 MONTHS FOR A TOTAL OF 2 YEARS)
     Route: 030
  12. MITOXANTRONE HYDROCHLORIDE [Suspect]
     Active Substance: MITOXANTRONE HYDROCHLORIDE
     Indication: Acute promyelocytic leukaemia
     Dosage: 50 MG/M2, CYCLIC(ON DAYS 1, 2, 3, 4, AND 5)
  13. MITOXANTRONE HYDROCHLORIDE [Suspect]
     Active Substance: MITOXANTRONE HYDROCHLORIDE
     Dosage: 10 MG/M2, CYCLIC(ON DAYS 1, 2, 3, 4, AND 5)
     Route: 042
  14. TRETINOIN [Suspect]
     Active Substance: TRETINOIN
     Indication: Acute promyelocytic leukaemia
     Dosage: 45 MG/M2, 1X/DAY FOR A TOTAL OF 45 DAYS
     Route: 048
  15. TRETINOIN [Suspect]
     Active Substance: TRETINOIN
     Dosage: EVERY 3 MONTHS FOR A TOTAL OF 2 YEARS
     Route: 048
  16. TRETINOIN [Suspect]
     Active Substance: TRETINOIN
     Dosage: 45 MG/M2, 1X/DAY FOR 15 DAYS
     Route: 048
  17. TRETINOIN [Suspect]
     Active Substance: TRETINOIN
     Dosage: 45 MG/M2, 1X/DAY FOR 15 DAYS
     Route: 048
  18. TRETINOIN [Suspect]
     Active Substance: TRETINOIN
     Dosage: 45 MG/M2, 1X/DAY FOR 15 DAYS
     Route: 048
  19. TRETINOIN [Suspect]
     Active Substance: TRETINOIN
     Dosage: 45 MG/M2, 1X/DAY FOR 15 DAYS (MAINTENANCE THERAPY, EVERY 3 MONTHS FOR A TOTAL OF 2 YEARS)
     Route: 048
  20. MERCAPTOPURINE [Suspect]
     Active Substance: MERCAPTOPURINE
     Indication: Acute promyelocytic leukaemia
     Dosage: 50 MG/M2 (MAINTENANCE THERAPY, EVERY 3 MONTHS FOR A TOTAL OF 2 YEARS)
     Route: 048
  21. MERCAPTOPURINE [Suspect]
     Active Substance: MERCAPTOPURINE
     Dosage: 70 MG/M2, CYCLIC: EVERY 8 HOURS ON DAYS 1, 2, 3, 4, AND 5
     Route: 048
  22. THIOGUANINE ANHYDROUS [Suspect]
     Active Substance: THIOGUANINE ANHYDROUS
     Indication: Acute promyelocytic leukaemia
     Dosage: EVERY 8 HOURS ON DAYS 1, 2, 3, 4, AND5

REACTIONS (2)
  - Second primary malignancy [Unknown]
  - Acute myeloid leukaemia [Unknown]

NARRATIVE: CASE EVENT DATE: 20220101
